APPROVED DRUG PRODUCT: BREVITAL SODIUM
Active Ingredient: METHOHEXITAL SODIUM
Strength: 200MG/VIAL
Dosage Form/Route: INJECTABLE;INJECTION
Application: N011559 | Product #004
Applicant: PH HEALTH LTD
Approved: Dec 21, 2012 | RLD: No | RS: No | Type: DISCN